FAERS Safety Report 4823173-5 (Version None)
Quarter: 2005Q4

REPORT INFORMATION
  Report Type: 
  Country: None (occurrence: None)
  Receive Date: 20051027
  Receipt Date: 20050613
  Transmission Date: 20060501
  Serious: Yes (Other)
  Sender: FDA-Public Use
  Company Number: HQWYE467315JUN05

PATIENT
  Age: 45 Year
  Sex: Female
  Weight: 77.18 kg

DRUGS (5)
  1. PREMARIN [Suspect]
     Indication: HORMONE REPLACEMENT THERAPY
     Dosage: 0.625 MG 1X PER 1 DAY,
     Dates: start: 19800101, end: 20020101
  2. PREMARIN [Suspect]
     Dosage: ^TOOK PREMARIN A COUPLE OF TIMES A FEW WEEKS AGO^, ORAL
     Route: 048
     Dates: start: 20050501
  3. SYNTHROID [Concomitant]
  4. DITROPAN XL (OXYBUTYNIN) [Concomitant]
  5. LESCOL [Concomitant]

REACTIONS (5)
  - BREAST ENGORGEMENT [None]
  - FLUID RETENTION [None]
  - HIRSUTISM [None]
  - HYPERTROPHY BREAST [None]
  - MYOCARDIAL INFARCTION [None]
